FAERS Safety Report 6520519-7 (Version None)
Quarter: 2009Q4

REPORT INFORMATION
  Report Type: 
  Country: None (occurrence: None)
  Receive Date: 20091229
  Receipt Date: 20091222
  Transmission Date: 20100525
  Serious: Yes (Hospitalization)
  Sender: FDA-Public Use
  Company Number: B0619421A

PATIENT
  Sex: Female

DRUGS (3)
  1. AUGMENTIN [Suspect]
     Indication: DRUG USE FOR UNKNOWN INDICATION
     Dosage: 1G TWICE PER DAY
     Route: 048
     Dates: start: 20091014, end: 20091021
  2. ASPIRIN [Suspect]
     Indication: EAR PRURITUS
     Route: 048
     Dates: start: 20091022, end: 20091022
  3. ADVIL [Suspect]
     Indication: DRUG USE FOR UNKNOWN INDICATION
     Route: 048
     Dates: start: 20091023, end: 20091024

REACTIONS (20)
  - ANGIOEDEMA [None]
  - CONDITION AGGRAVATED [None]
  - CONJUNCTIVITIS [None]
  - DIZZINESS [None]
  - EAR PRURITUS [None]
  - ERYTHEMA [None]
  - ERYTHEMA MULTIFORME [None]
  - EYELID OEDEMA [None]
  - GENERAL PHYSICAL HEALTH DETERIORATION [None]
  - HEADACHE [None]
  - HYPERTHYROIDISM [None]
  - MUSCULOSKELETAL STIFFNESS [None]
  - NEUTROPHILIA [None]
  - OEDEMA MOUTH [None]
  - OROPHARYNGEAL DISCOMFORT [None]
  - RASH [None]
  - RASH MACULAR [None]
  - RASH MACULO-PAPULAR [None]
  - TOXIC SKIN ERUPTION [None]
  - VOMITING [None]
